FAERS Safety Report 10422889 (Version 1)
Quarter: 2014Q3

REPORT INFORMATION
  Report Type: Spontaneous
  Country: US (occurrence: None)
  Receive Date: 20140722
  Receipt Date: 20140722
  Transmission Date: 20150326
  Serious: Yes (Other)
  Sender: FDA-Public Use
  Company Number: 163-10004-14051869

PATIENT
  Age: 56 Year
  Sex: Female
  Weight: 99.79 kg

DRUGS (2)
  1. OTEZLA [Suspect]
     Active Substance: APREMILAST
     Indication: PSORIATIC ARTHROPATHY
     Route: 048
     Dates: start: 20140417
  2. LEVALBUTEROL HCL (LEVALBUTEROL HYDROCHLORIDE) [Concomitant]

REACTIONS (4)
  - Nausea [None]
  - Upper respiratory tract infection [None]
  - Diarrhoea [None]
  - Decreased appetite [None]

NARRATIVE: CASE EVENT DATE: 20140423
